FAERS Safety Report 10335585 (Version 1)
Quarter: 2014Q3

REPORT INFORMATION
  Report Type: Spontaneous
  Country: US (occurrence: US)
  Receive Date: 20140723
  Receipt Date: 20140723
  Transmission Date: 20150326
  Serious: No
  Sender: FDA-Public Use
  Company Number: US-UNITED THERAPEUTICS-UTC-046907

PATIENT
  Sex: Female
  Weight: 104.32 kg

DRUGS (2)
  1. REMODULIN [Suspect]
     Active Substance: TREPROSTINIL
     Dosage: 0.060 UG/KG/MIN
     Route: 041
     Dates: start: 20100426
  2. REVATIO [Concomitant]
     Active Substance: SILDENAFIL CITRATE

REACTIONS (9)
  - Fluid retention [Unknown]
  - Upper respiratory tract infection [Unknown]
  - Fatigue [Unknown]
  - Medical device complication [Unknown]
  - Adverse drug reaction [Unknown]
  - Oropharyngeal pain [Unknown]
  - Hypotension [Unknown]
  - Oedema [Unknown]
  - Dizziness [Unknown]
